FAERS Safety Report 7040092-7 (Version None)
Quarter: 2010Q4

REPORT INFORMATION
  Report Type: 
  Country: None (occurrence: None)
  Receive Date: 20101012
  Receipt Date: 20100929
  Transmission Date: 20110411
  Serious: Yes (Other)
  Sender: FDA-Public Use
  Company Number: PHHY2010US66698

PATIENT
  Sex: Female

DRUGS (1)
  1. RECLAST [Suspect]
     Dosage: 5 MG
     Route: 042

REACTIONS (5)
  - DRUG INEFFECTIVE [None]
  - FALL [None]
  - PAIN [None]
  - PELVIC FRACTURE [None]
  - SPINAL COLUMN INJURY [None]
